FAERS Safety Report 17756428 (Version 1)
Quarter: 2020Q2

REPORT INFORMATION
  Report Type: Spontaneous
  Country: FR (occurrence: FR)
  Receive Date: 20200507
  Receipt Date: 20200507
  Transmission Date: 20200714
  Serious: Yes (Life-Threatening)
  Sender: FDA-Public Use
  Company Number: FR-CADILA HEALTHCARE LIMITED-FR-ZYDUS-022477

PATIENT

DRUGS (7)
  1. COAPROVEL [Suspect]
     Active Substance: HYDROCHLOROTHIAZIDE\IRBESARTAN
     Indication: HYPERTENSION
     Dosage: 1 DOSAGE FORM,300 MG / 25 MG COATED TABLETS,(INTERVAL :1 DAYS)
     Route: 048
  2. TAHOR [Suspect]
     Active Substance: ATORVASTATIN CALCIUM
     Indication: HYPERCHOLESTEROLAEMIA
     Dosage: 1 DOSAGE FORM,(INTERVAL :1 DAYS)
     Route: 048
  3. RILMENIDINE [Suspect]
     Active Substance: RILMENIDINE
     Indication: HYPERTENSION
     Dosage: 1 DOSAGE FORM,(INTERVAL :1 DAYS)
     Route: 048
  4. METFORMIN [Suspect]
     Active Substance: METFORMIN HYDROCHLORIDE
     Indication: INSULIN-REQUIRING TYPE 2 DIABETES MELLITUS
     Dosage: 1000 MILLIGRAM,(INTERVAL :1 DAYS)
     Route: 048
     Dates: end: 201706
  5. ZYLORIC [Suspect]
     Active Substance: ALLOPURINOL
     Indication: GOUT
     Dosage: 1 DOSAGE FORM,(INTERVAL :1 DAYS)
     Route: 048
  6. JANUVIA [Suspect]
     Active Substance: SITAGLIPTIN PHOSPHATE
     Indication: INSULIN-REQUIRING TYPE 2 DIABETES MELLITUS
     Dosage: 1 DOSAGE FORM,(INTERVAL :1 DAYS)
     Route: 048
     Dates: end: 201706
  7. DIAMICRON [Suspect]
     Active Substance: GLICLAZIDE
     Indication: INSULIN-REQUIRING TYPE 2 DIABETES MELLITUS
     Dosage: 1 DOSAGE FORM,60 MG, SCORED TABLET WITH MODIFIED RELEASE,(INTERVAL :1 DAYS)
     Route: 048
     Dates: end: 201706

REACTIONS (1)
  - Pancreatic carcinoma [Not Recovered/Not Resolved]

NARRATIVE: CASE EVENT DATE: 201706
